FAERS Safety Report 9876930 (Version 1)
Quarter: 2014Q1

REPORT INFORMATION
  Report Type: Spontaneous
  Country: US (occurrence: US)
  Receive Date: 20140206
  Receipt Date: 20140206
  Transmission Date: 20141002
  Serious: No
  Sender: FDA-Public Use
  Company Number: US-PFIZER INC-2014031096

PATIENT
  Age: 50 Year
  Sex: Female
  Weight: 67.12 kg

DRUGS (6)
  1. CHANTIX [Suspect]
     Indication: SMOKING CESSATION THERAPY
     Dosage: UNK
     Dates: start: 20140120, end: 201401
  2. CHANTIX [Suspect]
     Dosage: HIGHER DOSE
     Dates: start: 201401
  3. PROZAC [Concomitant]
     Dosage: UNK
  4. OMEPRAZOLE [Concomitant]
     Dosage: UNK
  5. ASPIRIN [Concomitant]
     Dosage: 81 MG, UNK
  6. MACA [Concomitant]
     Indication: MOOD SWINGS
     Dosage: UNK

REACTIONS (6)
  - Headache [Unknown]
  - Middle insomnia [Unknown]
  - Night sweats [Unknown]
  - Nausea [Unknown]
  - Feeling abnormal [Unknown]
  - Feeling hot [Unknown]
